FAERS Safety Report 4360094-9 (Version None)
Quarter: 2004Q2

REPORT INFORMATION
  Report Type: 
  Country: None (occurrence: None)
  Receive Date: 20040519
  Receipt Date: 20030130
  Transmission Date: 20050107
  Serious: Yes (Other)
  Sender: FDA-Public Use
  Company Number: PHEH2003US01147

PATIENT
  Age: 63 Year
  Sex: Female

DRUGS (7)
  1. AREDIA [Suspect]
     Indication: BREAST CANCER
     Dosage: UNK/UNK
  2. CHEMOTHERAPEUTICS,OTHER [Concomitant]
  3. VIOXX [Concomitant]
     Dosage: 25 MG, QD
  4. QUININE [Concomitant]
     Dosage: 250 MG, UNK
  5. ZOFRAN [Concomitant]
     Dosage: 8 MG, QD
  6. SKELAXIN [Concomitant]
     Dosage: 400 MG, UNK
  7. VITAMIN B-12 [Concomitant]
     Dosage: 1000 MCG, UNK

REACTIONS (12)
  - BIOPSY [None]
  - CHRONIC SINUSITIS [None]
  - DENTAL PROSTHESIS USER [None]
  - FISTULA [None]
  - GINGIVAL DISORDER [None]
  - HYPOAESTHESIA [None]
  - MANDIBULECTOMY [None]
  - NEOPLASM SKIN [None]
  - ORAL SURGERY [None]
  - OSTEOMYELITIS [None]
  - OSTEONECROSIS [None]
  - OSTEOSCLEROSIS [None]
